FAERS Safety Report 7126082-4 (Version None)
Quarter: 2010Q4

REPORT INFORMATION
  Report Type: 
  Country: None (occurrence: None)
  Receive Date: 20101129
  Receipt Date: 20101117
  Transmission Date: 20110411
  Serious: Yes (Hospitalization)
  Sender: FDA-Public Use
  Company Number: ES-SANOFI-AVENTIS-2010SA070073

PATIENT
  Age: 85 Year
  Sex: Female

DRUGS (7)
  1. MULTAQ [Suspect]
     Indication: ARRHYTHMIA
     Route: 048
  2. EMCONCOR /SPA/ [Concomitant]
  3. SEGURIL [Concomitant]
  4. SOMAZINA [Concomitant]
  5. LEXATIN [Concomitant]
  6. ATACAND [Concomitant]
  7. SINTROM [Concomitant]
     Dosage: DOSE:0.5 UNIT(S)
     Route: 065

REACTIONS (3)
  - BLOOD CREATININE INCREASED [None]
  - HEPATITIS TOXIC [None]
  - VOMITING [None]
